FAERS Safety Report 5512662-6 (Version None)
Quarter: 2007Q4

REPORT INFORMATION
  Report Type: 
  Country: None (occurrence: None)
  Receive Date: 20071112
  Receipt Date: 20071031
  Transmission Date: 20080405
  Serious: Yes (Hospitalization)
  Sender: FDA-Public Use
  Company Number: FR-GENENTECH-250937

PATIENT
  Age: 74 Year
  Sex: Male

DRUGS (8)
  1. MABTHERA [Suspect]
     Indication: LYMPHOMA
     Route: 042
  2. CYCLOPHOSPHAMIDE [Concomitant]
     Indication: LYMPHOMA
  3. DOXORUBICIN HCL [Concomitant]
     Indication: LYMPHOMA
  4. VINCRISTINE [Concomitant]
     Indication: LYMPHOMA
  5. PREDNISONE [Concomitant]
     Indication: LYMPHOMA
  6. CORTICOSTEROID (UNK INGREDIENTS) [Concomitant]
     Indication: PREMEDICATION
  7. ATARAX [Concomitant]
     Indication: PREMEDICATION
  8. POLARAMINE [Concomitant]
     Indication: PREMEDICATION

REACTIONS (1)
  - CAPILLARY LEAK SYNDROME [None]
